FAERS Safety Report 15428441 (Version 2)
Quarter: 2019Q1

REPORT INFORMATION
  Report Type: Spontaneous
  Country: AU (occurrence: AU)
  Receive Date: 20180926
  Receipt Date: 20190314
  Transmission Date: 20190417
  Serious: Yes (Death, Life-Threatening, Hospitalization)
  Sender: FDA-Public Use
  Company Number: AU-SUN PHARMACEUTICAL INDUSTRIES LTD-2018R1-185403

PATIENT
  Age: 55 Year
  Sex: Female

DRUGS (2)
  1. CARBOPLATIN. [Suspect]
     Active Substance: CARBOPLATIN
     Indication: OVARIAN CANCER STAGE III
     Dosage: UNK (385 MG/BODY TO ACHIEVE AREA UNDER THE CURVE OF 5)
     Route: 065
  2. PACLITAXEL. [Suspect]
     Active Substance: PACLITAXEL
     Indication: OVARIAN CANCER STAGE III
     Dosage: UNK (THREE WEEKLY CYCLE OF PACLITAXEL 100 MG/M2)
     Route: 065

REACTIONS (7)
  - Escherichia infection [Unknown]
  - Neutropenic colitis [Unknown]
  - White blood cell count decreased [Unknown]
  - Respiratory disorder [Unknown]
  - Rectal perforation [Fatal]
  - Neutropenia [Unknown]
  - Septic shock [Unknown]
